FAERS Safety Report 15142337 (Version 2)
Quarter: 2018Q3

REPORT INFORMATION
  Report Type: Spontaneous
  Country: FR (occurrence: FR)
  Receive Date: 20180713
  Receipt Date: 20180719
  Transmission Date: 20181010
  Serious: Yes (Hospitalization, Other)
  Sender: FDA-Public Use
  Company Number: FR-MYLANLABS-2018M1052492

PATIENT
  Age: 88 Year
  Sex: Female
  Weight: 36 kg

DRUGS (8)
  1. ENALAPRIL [Concomitant]
     Active Substance: ENALAPRIL
     Indication: HYPERTENSION
     Dosage: 2.5 MG, UNK (OR 5 MG)
     Dates: start: 201709, end: 20171127
  2. CYANOCOBALAMIN. [Concomitant]
     Active Substance: CYANOCOBALAMIN
     Indication: PRODUCT USED FOR UNKNOWN INDICATION
     Dosage: 250 ?G, UNK (ON MONDAY AND TUESDAY)
     Dates: start: 201709
  3. LACOSAMIDE. [Interacting]
     Active Substance: LACOSAMIDE
     Indication: NEURODEGENERATIVE DISORDER
  4. ACETAMINOPHEN. [Concomitant]
     Active Substance: ACETAMINOPHEN
     Indication: PRODUCT USED FOR UNKNOWN INDICATION
     Dosage: 2 MG, UNK (1 MG, IF NEEDED)
     Dates: start: 201709
  5. LACOSAMIDE. [Interacting]
     Active Substance: LACOSAMIDE
     Indication: EPILEPSY
     Dosage: 50 MG, BID
     Dates: start: 20171128, end: 20171204
  6. PANTOPRAZOLE [Concomitant]
     Active Substance: PANTOPRAZOLE
     Indication: PRODUCT USED FOR UNKNOWN INDICATION
     Dosage: 20 MG, QD
     Dates: start: 201709
  7. MACROGOL [Concomitant]
     Active Substance: POLYETHYLENE GLYCOLS
     Indication: PRODUCT USED FOR UNKNOWN INDICATION
     Dosage: 10 G, UNK (ONCE OR TWICE A DAY)
     Dates: start: 201709
  8. BISOPROLOL [Suspect]
     Active Substance: BISOPROLOL
     Indication: PRODUCT USED FOR UNKNOWN INDICATION
     Dosage: 1.25 MG, QD
     Dates: start: 201709, end: 20171204

REACTIONS (4)
  - Drug interaction [Unknown]
  - Sinus bradycardia [Recovering/Resolving]
  - Atrioventricular block [Not Recovered/Not Resolved]
  - Hypotension [Recovering/Resolving]

NARRATIVE: CASE EVENT DATE: 20171128
